FAERS Safety Report 10332397 (Version 1)
Quarter: 2014Q3

REPORT INFORMATION
  Report Type: Spontaneous
  Country: IT (occurrence: IT)
  Receive Date: 20140722
  Receipt Date: 20140722
  Transmission Date: 20150326
  Serious: Yes (Hospitalization)
  Sender: FDA-Public Use
  Company Number: IT-BRISTOL-MYERS SQUIBB COMPANY-21206289

PATIENT
  Age: 68 Year
  Sex: Male

DRUGS (9)
  1. ALDACTONE [Concomitant]
     Active Substance: SPIRONOLACTONE
  2. FUROSEMIDE. [Concomitant]
     Active Substance: FUROSEMIDE
  3. METFORMIN HCL [Suspect]
     Active Substance: METFORMIN HYDROCHLORIDE
     Indication: DIABETES MELLITUS
     Route: 048
     Dates: start: 20131201, end: 20140507
  4. CARDIOASPIRIN [Concomitant]
     Active Substance: ASPIRIN
  5. ZYLORIC [Concomitant]
     Active Substance: ALLOPURINOL
  6. ATORVASTATIN [Concomitant]
     Active Substance: ATORVASTATIN
  7. ENTUMINE [Concomitant]
     Active Substance: CLOTHIAPINE
  8. ENALAPRIL [Concomitant]
     Active Substance: ENALAPRIL
  9. BISOPROLOL [Concomitant]
     Active Substance: BISOPROLOL

REACTIONS (2)
  - Renal failure acute [Recovered/Resolved]
  - Lactic acidosis [Recovered/Resolved]

NARRATIVE: CASE EVENT DATE: 20140507
